FAERS Safety Report 9869885 (Version 2)
Quarter: 2014Q1

REPORT INFORMATION
  Report Type: Spontaneous
  Country: JP (occurrence: JP)
  Receive Date: 20140205
  Receipt Date: 20140225
  Transmission Date: 20141002
  Serious: Yes (Hospitalization, Other)
  Sender: FDA-Public Use
  Company Number: PHHY2014JP012131

PATIENT
  Age: 76 Year
  Sex: Female
  Weight: 47 kg

DRUGS (10)
  1. FEMARA [Suspect]
     Indication: BREAST CANCER
     Dosage: 2.5 MG, DAILY
     Route: 048
     Dates: start: 20130718, end: 20130919
  2. HERCEPTIN [Suspect]
     Indication: ADJUVANT THERAPY
     Dosage: 8 MG/KG, WEEKLY
     Dates: start: 20130606, end: 20130606
  3. HERCEPTIN [Suspect]
     Dosage: UNK
     Dates: start: 20130627, end: 20131010
  4. LANSOPRAZOLE [Concomitant]
     Dosage: 15 MG, UNK
     Route: 048
  5. BLOPRESS [Concomitant]
     Indication: CARDIAC FAILURE CHRONIC
     Dosage: 4 MG, UNK
     Route: 048
  6. LASIX [Concomitant]
     Indication: CARDIAC FAILURE CHRONIC
     Dosage: 40 MG, UNK
     Route: 048
  7. ALDACTONE A [Concomitant]
     Indication: CARDIAC FAILURE CHRONIC
     Dosage: 12.5 MG, UNK
     Route: 048
  8. AROMASIN [Concomitant]
     Dosage: 25 MG, UNK
     Route: 048
  9. BROTIZOLAM [Concomitant]
     Indication: INSOMNIA
     Route: 048
  10. KARY UNI [Concomitant]
     Indication: CATARACT
     Route: 048

REACTIONS (11)
  - Cardiac failure chronic [Recovering/Resolving]
  - Pulmonary congestion [Unknown]
  - Pericardial effusion [Unknown]
  - Dyspnoea [Unknown]
  - Anaemia [Unknown]
  - Haemoglobin decreased [Unknown]
  - Cardiac disorder [Unknown]
  - Pyrexia [Unknown]
  - Weight increased [Unknown]
  - Blood lactate dehydrogenase increased [Unknown]
  - Blood potassium increased [Unknown]
